FAERS Safety Report 7894259-6 (Version None)
Quarter: 2011Q4

REPORT INFORMATION
  Report Type: 
  Country: None (occurrence: None)
  Receive Date: 20111104
  Receipt Date: 20111027
  Transmission Date: 20120403
  Serious: Yes (Hospitalization)
  Sender: FDA-Public Use
  Company Number: JP-ROCHE-787668

PATIENT
  Sex: Female
  Weight: 47 kg

DRUGS (3)
  1. ACTEMRA [Suspect]
  2. ACTEMRA [Suspect]
     Indication: RHEUMATOID ARTHRITIS
     Route: 041
     Dates: start: 20100318, end: 20100521
  3. PREDNISOLONE [Concomitant]
     Route: 048
     Dates: start: 20070101

REACTIONS (2)
  - C-REACTIVE PROTEIN INCREASED [None]
  - ACUTE PULMONARY OEDEMA [None]
